FAERS Safety Report 25105075 (Version 1)
Quarter: 2025Q1

REPORT INFORMATION
  Report Type: Spontaneous
  Country: US (occurrence: None)
  Receive Date: 20250321
  Receipt Date: 20250321
  Transmission Date: 20250408
  Serious: No
  Sender: FDA-CTU
  Company Number: None

PATIENT
  Sex: Female
  Weight: 62.55 kg

DRUGS (19)
  1. WEGOVY [Suspect]
     Active Substance: SEMAGLUTIDE
     Indication: Obesity
     Dates: start: 20240905, end: 20250123
  2. WEGOVY [Suspect]
     Active Substance: SEMAGLUTIDE
     Indication: Blood cholesterol increased
  3. WEGOVY [Suspect]
     Active Substance: SEMAGLUTIDE
     Indication: Blood triglycerides increased
  4. PLAQUINIL [Concomitant]
  5. NEURONTIN [Concomitant]
     Active Substance: GABAPENTIN
  6. BACLOFEN [Concomitant]
     Active Substance: BACLOFEN
  7. SYNTHROID [Concomitant]
     Active Substance: LEVOTHYROXINE SODIUM
  8. TYRVAYA [Concomitant]
     Active Substance: VARENICLINE TARTRATE
  9. FLUOROMETHOLONE OPTHALMIC SUSPENSION TRAMADOL PRN [Concomitant]
  10. IBUPROFEN PRN [Concomitant]
  11. XANAX [Concomitant]
     Active Substance: ALPRAZOLAM
  12. PEPCID [Concomitant]
     Active Substance: FAMOTIDINE
  13. VITAMIN D3 [Concomitant]
     Active Substance: CHOLECALCIFEROL
  14. MAGNESIUM [Concomitant]
     Active Substance: MAGNESIUM
  15. MINERALS\VITAMINS [Concomitant]
     Active Substance: MINERALS\VITAMINS
  16. ZYRTEC [Concomitant]
     Active Substance: CETIRIZINE HYDROCHLORIDE
  17. FLONASE [Concomitant]
     Active Substance: FLUTICASONE PROPIONATE
  18. OPCON-A [Concomitant]
     Active Substance: NAPHAZOLINE HYDROCHLORIDE\PHENIRAMINE MALEATE
  19. THERA TEARS EYE DROPS [Concomitant]

REACTIONS (2)
  - Pain of skin [None]
  - Hypersensitivity [None]
